FAERS Safety Report 8323117-8 (Version None)
Quarter: 2012Q2

REPORT INFORMATION
  Report Type: 
  Country: None (occurrence: None)
  Receive Date: 20120430
  Receipt Date: 20120426
  Transmission Date: 20120825
  Serious: Yes (Other)
  Sender: FDA-Public Use
  Company Number: PHHY2012DE017944

PATIENT
  Sex: Male
  Weight: 90 kg

DRUGS (9)
  1. ZOMETA [Suspect]
     Indication: BONE DISORDER
     Dosage: 4 MG, EVERY 4 WEEKS
     Dates: start: 20110418, end: 20120131
  2. ROFERON-A [Concomitant]
     Indication: RENAL CELL CARCINOMA
     Dosage: 9 MIO I.E./ WEEK
     Route: 030
     Dates: start: 20110411
  3. METOPROLOL TARTRATE [Concomitant]
     Dosage: 50 MG, DAILY
  4. FUROSEMIDE [Concomitant]
     Dosage: 20 MG, DAILY
     Route: 048
  5. SIMVASTATIN [Concomitant]
     Dosage: UNK UKN, UNK
     Route: 048
  6. ATACAND [Concomitant]
     Dosage: 12.5 MG, DAILY
     Route: 048
  7. LERCANIDIPINE [Concomitant]
     Dosage: 10 MG, DAILY
     Route: 048
  8. AVASTIN [Concomitant]
     Indication: RENAL CELL CARCINOMA
     Dosage: 900 MG, EVERY 2 WEEKS
     Route: 042
     Dates: start: 20110411
  9. ALLOPURINOL [Concomitant]
     Dosage: 150 MG, DAILY
     Route: 048

REACTIONS (2)
  - GINGIVITIS [None]
  - BONE FISTULA [None]
